FAERS Safety Report 17227323 (Version 1)
Quarter: 2020Q1

REPORT INFORMATION
  Report Type: Spontaneous
  Country: FR (occurrence: FR)
  Receive Date: 20200103
  Receipt Date: 20200103
  Transmission Date: 20200409
  Serious: Yes (Hospitalization)
  Sender: FDA-Public Use
  Company Number: FR-TEVA-2019-FR-1160779

PATIENT
  Age: 82 Year
  Sex: Female
  Weight: 63.5 kg

DRUGS (18)
  1. VERAPAMIL (CHLORHYDRATE DE) [Concomitant]
     Active Substance: VERAPAMIL HYDROCHLORIDE
     Dosage: 125 MG
     Route: 048
  2. ATARAX [Concomitant]
     Active Substance: HYDROXYZINE HYDROCHLORIDE
     Dosage: 1 DF
     Route: 048
  3. SPIRIVA [Concomitant]
     Active Substance: TIOTROPIUM BROMIDE MONOHYDRATE
     Dosage: 1 DF
     Route: 055
  4. GENTAMICINE [Concomitant]
     Active Substance: GENTAMICIN
     Route: 042
  5. TRIFLUCAN [Concomitant]
     Active Substance: FLUCONAZOLE
     Route: 048
  6. MIRTAZAPINE. [Concomitant]
     Active Substance: MIRTAZAPINE
     Dosage: 7.5 MG
     Route: 048
  7. FOSFOMYCINE [Concomitant]
     Active Substance: FOSFOMYCIN
     Route: 042
  8. GYNO PEVARYL [Concomitant]
     Active Substance: ECONAZOLE NITRATE
     Route: 067
  9. CALCIDOSE [Concomitant]
     Dosage: 1 DF
     Route: 048
  10. GAVISCON [Concomitant]
     Active Substance: ALUMINUM HYDROXIDE\MAGNESIUM CARBONATE
     Dosage: 3 DF
     Route: 048
  11. MONOPROST [Concomitant]
     Active Substance: LATANOPROST
     Dosage: 2 GTT
     Route: 047
  12. RELVAR ELLIPTA [Concomitant]
     Active Substance: FLUTICASONE FUROATE\VILANTEROL TRIFENATATE
     Dosage: 1 DF
     Route: 055
  13. TAZOBACTAM [Concomitant]
     Active Substance: TAZOBACTAM
     Route: 042
  14. CEFOXITIN [Concomitant]
     Active Substance: CEFOXITIN SODIUM
     Dates: start: 20190822, end: 20190902
  15. ORBENINE [Concomitant]
     Active Substance: CLOXACILLIN SODIUM
     Route: 042
  16. VENTOLINE [Concomitant]
     Active Substance: ALBUTEROL
     Dosage: 2 DF
     Route: 055
  17. PANTOPRAZOLE [Suspect]
     Active Substance: PANTOPRAZOLE
     Indication: GASTRITIS
     Dosage: 20 MG
     Route: 048
     Dates: end: 20190814
  18. PARACETAMOL [Concomitant]
     Active Substance: ACETAMINOPHEN
     Dosage: 3000 MG
     Route: 048

REACTIONS (1)
  - Inappropriate antidiuretic hormone secretion [Recovered/Resolved]

NARRATIVE: CASE EVENT DATE: 20190814
